FAERS Safety Report 7270290-9 (Version None)
Quarter: 2011Q1

REPORT INFORMATION
  Report Type: 
  Country: None (occurrence: None)
  Receive Date: 20110125
  Receipt Date: 20110125
  Transmission Date: 20110831
  Serious: Yes (Other)
  Sender: FDA-Public Use
  Company Number: None

PATIENT
  Sex: Male
  Weight: 25.4014 kg

DRUGS (1)
  1. DAYTRANA [Suspect]
     Indication: ATTENTION DEFICIT/HYPERACTIVITY DISORDER
     Dosage: 15 MG DELIVERED FOR 9 HOURS 9 HOURS THEN REMOVE TRANSDERMAL
     Route: 062
     Dates: start: 20070101

REACTIONS (2)
  - FAECAL INCONTINENCE [None]
  - GASTROINTESTINAL DISORDER [None]
